FAERS Safety Report 4647164-2 (Version None)
Quarter: 2005Q2

REPORT INFORMATION
  Report Type: 
  Country: None (occurrence: None)
  Receive Date: 20050426
  Receipt Date: 20050419
  Transmission Date: 20051028
  Serious: Yes (Hospitalization)
  Sender: FDA-Public Use
  Company Number: 2005AL001484

PATIENT
  Age: 72 Year
  Sex: Female

DRUGS (9)
  1. KADIAN [Suspect]
     Indication: ABDOMINAL PAIN
     Dosage: 60 MG, QD; PO
     Route: 048
  2. PAROXETINE HYDROCHLORIDE [Suspect]
     Indication: DEPRESSION
     Dosage: 20 MG; QD; PO
     Route: 048
  3. MEPRONIZINE [Concomitant]
  4. MIANSERIN HYDROCHLORIDE [Concomitant]
  5. ZOPICLONE [Concomitant]
  6. LORAZEPAM [Concomitant]
  7. ACEBUTOLOL HCL [Concomitant]
  8. NICARDIPINE HCL [Concomitant]
  9. LANSOPRAZOLE [Concomitant]

REACTIONS (3)
  - ACUTE PULMONARY OEDEMA [None]
  - DRUG INTERACTION [None]
  - HYPERTENSION [None]
